FAERS Safety Report 7591990-7 (Version None)
Quarter: 2011Q3

REPORT INFORMATION
  Report Type: 
  Country: None (occurrence: None)
  Receive Date: 20110706
  Receipt Date: 20110701
  Transmission Date: 20111222
  Serious: Yes (Disabling)
  Sender: FDA-Public Use
  Company Number: GB-SANOFI-AVENTIS-2011SA034848

PATIENT
  Age: 63 Year
  Sex: Female
  Weight: 67.5 kg

DRUGS (2)
  1. ENOXAPARIN SODIUM [Suspect]
     Indication: PULMONARY EMBOLISM
     Route: 058
     Dates: start: 20110301
  2. PREDNISOLONE [Concomitant]

REACTIONS (2)
  - OEDEMA PERIPHERAL [None]
  - MYALGIA [None]
